FAERS Safety Report 5987584-7 (Version None)
Quarter: 2008Q4

REPORT INFORMATION
  Report Type: 
  Country: None (occurrence: None)
  Receive Date: 20081128
  Receipt Date: 20081118
  Transmission Date: 20090506
  Serious: Yes (Other)
  Sender: FDA-Public Use
  Company Number: 08H-163-0315199-00

PATIENT
  Age: 35 Year
  Sex: Male
  Weight: 104.9 kg

DRUGS (2)
  1. HEPARIN SODIUM INJECTION [Suspect]
     Indication: ANTICOAGULANT THERAPY
     Dates: start: 20060101, end: 20060101
  2. LOVENOX [Suspect]
     Indication: ANTICOAGULANT THERAPY
     Dates: start: 20060101, end: 20060101

REACTIONS (1)
  - HEPARIN-INDUCED THROMBOCYTOPENIA [None]
